FAERS Safety Report 4916793-0 (Version None)
Quarter: 2006Q1

REPORT INFORMATION
  Report Type: 
  Country: None (occurrence: None)
  Receive Date: 20060216
  Receipt Date: 20060216
  Transmission Date: 20060701
  Serious: Yes (Other)
  Sender: FDA-Public Use
  Company Number: None

PATIENT
  Age: 77 Year
  Sex: Female
  Weight: 98.8842 kg

DRUGS (5)
  1. METFORMIN [Suspect]
     Indication: DIABETES MELLITUS
     Dosage: BID
     Dates: start: 20060201
  2. LIPITOR [Concomitant]
  3. ADVAIR SINGULAIR [Concomitant]
  4. ATENOLOL [Concomitant]
  5. AMARYL [Concomitant]

REACTIONS (1)
  - NAUSEA [None]
